FAERS Safety Report 7581021-7 (Version None)
Quarter: 2011Q2

REPORT INFORMATION
  Report Type: 
  Country: None (occurrence: None)
  Receive Date: 20110629
  Receipt Date: 20110624
  Transmission Date: 20111010
  Serious: Yes (Hospitalization)
  Sender: FDA-Public Use
  Company Number: JP-PFIZER INC-2011068828

PATIENT
  Age: 4 Year
  Sex: Male

DRUGS (2)
  1. SOMATROPIN [Suspect]
     Dosage: 1.8 MG, WEEKLY
     Route: 058
     Dates: start: 20090728, end: 20091224
  2. SOMATROPIN [Suspect]
     Indication: SMALL FOR DATES BABY
     Dosage: 2.4 MG, WEEKLY
     Route: 058
     Dates: start: 20090422, end: 20090727

REACTIONS (1)
  - ADENOIDAL HYPERTROPHY [None]
